FAERS Safety Report 8622651-0 (Version None)
Quarter: 2012Q3

REPORT INFORMATION
  Report Type: 
  Country: None (occurrence: None)
  Receive Date: 20120827
  Receipt Date: 20120816
  Transmission Date: 20120928
  Serious: Yes (Other)
  Sender: FDA-Public Use
  Company Number: DE-JNJFOC-20120807432

PATIENT
  Age: 28 Year
  Sex: Female

DRUGS (4)
  1. REMICADE [Suspect]
     Route: 042
     Dates: start: 20110301
  2. REMICADE [Suspect]
     Indication: CROHN'S DISEASE
     Route: 042
     Dates: start: 20120301
  3. REMICADE [Suspect]
     Dosage: 3RD INFUSION
     Route: 042
     Dates: start: 20110601, end: 20110801
  4. REMICADE [Suspect]
     Route: 042
     Dates: start: 20120601

REACTIONS (4)
  - ARTHRALGIA [None]
  - JOINT SWELLING [None]
  - DRUG EFFECT DECREASED [None]
  - JOINT STIFFNESS [None]
